FAERS Safety Report 11506000 (Version 1)
Quarter: 2015Q3

REPORT INFORMATION
  Report Type: Spontaneous
  Country: FR (occurrence: FR)
  Receive Date: 20150915
  Receipt Date: 20150915
  Transmission Date: 20151125
  Serious: Yes (Death)
  Sender: FDA-Public Use
  Company Number: FR-009507513-1509FRA005485

PATIENT
  Age: 1 Month
  Sex: Male

DRUGS (16)
  1. NEO-SYNEPHRINE [Suspect]
     Active Substance: PHENYLEPHRINE HYDROCHLORIDE
     Indication: DIAGNOSTIC PROCEDURE
     Dosage: UNSPECIFIED
     Route: 031
     Dates: start: 20150106
  2. ALDACTONE [Suspect]
     Active Substance: SPIRONOLACTONE
     Indication: BRONCHOPULMONARY DYSPLASIA
     Dosage: UNSPECIFIED
     Route: 065
     Dates: start: 20141217, end: 20150116
  3. FERROSTRANE [Suspect]
     Active Substance: SODIUM FEREDETATE
     Indication: ANAEMIA
     Dosage: 2 MG/KG, QD
     Route: 048
     Dates: start: 20150110, end: 20150114
  4. FERROSTRANE [Suspect]
     Active Substance: SODIUM FEREDETATE
     Dosage: 3 MG/KG, QD
     Route: 048
     Dates: start: 20150115, end: 20150116
  5. IBUPROFEN. [Suspect]
     Active Substance: IBUPROFEN
     Dosage: 5 MG/KG FROM DAY 2 TO DAY 6
     Route: 065
     Dates: start: 20141125, end: 20141129
  6. CELESTENE [Suspect]
     Active Substance: BETAMETHASONE
     Indication: BRONCHOPULMONARY DYSPLASIA
     Dosage: 0.25 MG/KG/DAY
     Route: 042
     Dates: start: 20141221, end: 20141222
  7. IBUPROFEN. [Suspect]
     Active Substance: IBUPROFEN
     Indication: PATENT DUCTUS ARTERIOSUS
     Dosage: 10 MG/KG, UNK
     Route: 065
     Dates: start: 20141124, end: 20141124
  8. CAFFEINE COOPER [Suspect]
     Active Substance: CAFFEINE
     Indication: APNOEA NEONATAL
     Dosage: UNSPECIFIED
     Route: 065
     Dates: start: 20141123, end: 20150124
  9. PULMICORT TURBUHALER [Suspect]
     Active Substance: BUDESONIDE
     Indication: BRONCHOPULMONARY DYSPLASIA
     Dosage: 0.25 MG, Q12H
     Dates: start: 20141217, end: 20141222
  10. INEXIUM (ESOMEPRAZOLE SODIUM) [Suspect]
     Active Substance: ESOMEPRAZOLE
     Indication: PRODUCT USED FOR UNKNOWN INDICATION
     Dosage: UNSPECIFIED
     Route: 048
     Dates: start: 20150106, end: 20150117
  11. CELESTENE [Suspect]
     Active Substance: BETAMETHASONE
     Dosage: 0.063 MG/KG/DAY
     Route: 042
     Dates: start: 20141223, end: 20141223
  12. PANTOPRAZOLE [Suspect]
     Active Substance: PANTOPRAZOLE SODIUM
     Indication: PRODUCT USED FOR UNKNOWN INDICATION
     Dosage: UNSPECIFIED
     Route: 042
     Dates: start: 20141229, end: 20150106
  13. NEO-SYNEPHRINE [Suspect]
     Active Substance: PHENYLEPHRINE HYDROCHLORIDE
     Dosage: UNSPECIFIED
     Route: 031
     Dates: start: 20150120
  14. MYDRIATICUM [Suspect]
     Active Substance: TROPICAMIDE
     Indication: DIAGNOSTIC PROCEDURE
     Dosage: UNSPECIFIED
     Route: 031
     Dates: start: 20150106
  15. RIFAMYCINE CHIBRET [Suspect]
     Active Substance: RIFAMYCIN
     Indication: INFECTION PROPHYLAXIS
     Dosage: UNK
     Route: 031
     Dates: start: 20141123
  16. MYDRIATICUM [Suspect]
     Active Substance: TROPICAMIDE
     Dosage: UNSPECIFIED
     Route: 031
     Dates: start: 20150120

REACTIONS (1)
  - Necrotising enterocolitis neonatal [Fatal]

NARRATIVE: CASE EVENT DATE: 20150116
